FAERS Safety Report 11980695 (Version 1)
Quarter: 2016Q1

REPORT INFORMATION
  Report Type: Report from Study
  Country: TH (occurrence: TH)
  Receive Date: 20160129
  Receipt Date: 20160129
  Transmission Date: 20160526
  Serious: Yes (Death)
  Sender: FDA-Public Use
  Company Number: TH-ACTAVIS-2016-01198

PATIENT
  Age: 73 Year
  Sex: Male

DRUGS (4)
  1. CODEPECT                           /00693301/ [Concomitant]
     Indication: COUGH
     Dosage: 2 DF, DAILY
     Route: 048
     Dates: start: 20150727
  2. DOCETAXEL (ACTAVIS) [Suspect]
     Active Substance: DOCETAXEL
     Indication: NON-SMALL CELL LUNG CANCER
     Dosage: 110 MG, DAY 1 OF A 21 DAY CYCLE
     Route: 042
     Dates: start: 20151103
  3. CUSTIRSEN [Suspect]
     Active Substance: CUSTIRSEN
     Indication: NON-SMALL CELL LUNG CANCER
     Dosage: 640 MG, DAY 1, 8, 15 OF A 21 DAY CYCLE
     Route: 042
     Dates: start: 20151026
  4. TRAMADOL. [Concomitant]
     Active Substance: TRAMADOL
     Indication: PAIN
     Dosage: 50 UNK, DAILY
     Route: 048
     Dates: start: 20141218

REACTIONS (2)
  - Diarrhoea [Fatal]
  - Haematemesis [Fatal]

NARRATIVE: CASE EVENT DATE: 20151109
